FAERS Safety Report 25329178 (Version 1)
Quarter: 2025Q2

REPORT INFORMATION
  Report Type: Spontaneous
  Country: GB (occurrence: GB)
  Receive Date: 20250519
  Receipt Date: 20250519
  Transmission Date: 20250717
  Serious: Yes (Hospitalization)
  Sender: ACCORD
  Company Number: None

PATIENT
  Age: 56 Year

DRUGS (16)
  1. APIXABAN [Suspect]
     Active Substance: APIXABAN
     Indication: Product used for unknown indication
  2. FUROSEMIDE [Concomitant]
     Active Substance: FUROSEMIDE
  3. FOLIC ACID [Concomitant]
     Active Substance: FOLIC ACID
  4. NITROGLYCERIN [Concomitant]
     Active Substance: NITROGLYCERIN
  5. PROPRANOLOL [Concomitant]
     Active Substance: PROPRANOLOL HYDROCHLORIDE
  6. MORPHINE SULFATE [Concomitant]
     Active Substance: MORPHINE SULFATE
  7. ATORVASTATIN [Concomitant]
     Active Substance: ATORVASTATIN
  8. AMLODIPINE [Concomitant]
     Active Substance: AMLODIPINE BESYLATE
  9. THIAMINE [Concomitant]
     Active Substance: THIAMINE
  10. MIRTAZAPINE [Concomitant]
     Active Substance: MIRTAZAPINE
  11. PREGABALIN [Concomitant]
     Active Substance: PREGABALIN
  12. OMEPRAZOLE [Concomitant]
     Active Substance: OMEPRAZOLE
  13. ALBUTEROL [Concomitant]
     Active Substance: ALBUTEROL
  14. RAMIPRIL [Concomitant]
     Active Substance: RAMIPRIL
  15. FLUOXETINE [Concomitant]
     Active Substance: FLUOXETINE HYDROCHLORIDE
  16. BECLOMETASONE, FORMOTEROL, GLYCOPYRRONIUM [Concomitant]

REACTIONS (1)
  - Blister [Unknown]
